FAERS Safety Report 5927858-9 (Version None)
Quarter: 2008Q4

REPORT INFORMATION
  Report Type: 
  Country: None (occurrence: None)
  Receive Date: 20081021
  Receipt Date: 20081014
  Transmission Date: 20090506
  Serious: Yes (Death)
  Sender: FDA-Public Use
  Company Number: 2008AL011200

PATIENT
  Age: 64 Year
  Sex: Female

DRUGS (3)
  1. DIGOXIN [Suspect]
     Dosage: 0.125MG, PO
     Route: 048
  2. MIDODRINE [Concomitant]
  3. FOLBIC [Concomitant]

REACTIONS (2)
  - PRODUCT QUALITY ISSUE [None]
  - SUDDEN DEATH [None]
